FAERS Safety Report 10478485 (Version 1)
Quarter: 2014Q3

REPORT INFORMATION
  Report Type: Spontaneous
  Country: US (occurrence: None)
  Receive Date: 20140924
  Receipt Date: 20140924
  Transmission Date: 20150326
  Serious: Yes (Other)
  Sender: FDA-Public Use
  Company Number: ADR-2014-01721

PATIENT
  Age: 57 Year
  Sex: Male

DRUGS (10)
  1. ARICEPT [Concomitant]
     Active Substance: DONEPEZIL HYDROCHLORIDE
  2. GABAPENTIN. [Suspect]
     Active Substance: GABAPENTIN
  3. GABAPENTIN. [Concomitant]
     Active Substance: GABAPENTIN
  4. AXERT (ALMOTRIPTAN MALATE) [Concomitant]
  5. GILENYA [Suspect]
     Active Substance: FINGOLIMOD HYDROCHLORIDE
     Indication: MULTIPLE SCLEROSIS
     Dates: start: 20111211
  6. TOPAMAX [Concomitant]
     Active Substance: TOPIRAMATE
  7. ANAPROX (NAPROXEN SODIUM) [Concomitant]
  8. EFFEXOR (VENLAFAXINE HYDROCHLORIDE) [Concomitant]
  9. ORAL BACLOFEN [Suspect]
     Active Substance: BACLOFEN
  10. BACLOFEN INTRATHECAL [Suspect]
     Active Substance: BACLOFEN

REACTIONS (25)
  - Myelitis [None]
  - Hypoaesthesia [None]
  - Myalgia [None]
  - Device leakage [None]
  - Cognitive disorder [None]
  - Musculoskeletal disorder [None]
  - Hallucination, auditory [None]
  - Cystitis [None]
  - Faecal incontinence [None]
  - Balance disorder [None]
  - Fall [None]
  - Amnesia [None]
  - Erectile dysfunction [None]
  - Joint stiffness [None]
  - Ataxia [None]
  - Paraesthesia [None]
  - Gait disturbance [None]
  - Migraine [None]
  - Depression [None]
  - Progressive relapsing multiple sclerosis [None]
  - Muscle spasms [None]
  - Optic neuritis [None]
  - Vitamin D deficiency [None]
  - Asthenia [None]
  - Coordination abnormal [None]
